FAERS Safety Report 23285396 (Version 2)
Quarter: 2024Q1

REPORT INFORMATION
  Report Type: Spontaneous
  Country: AT (occurrence: AT)
  Receive Date: 20231211
  Receipt Date: 20240313
  Transmission Date: 20240410
  Serious: Yes (Other)
  Sender: FDA-Public Use
  Company Number: AT-BRISTOL-MYERS SQUIBB COMPANY-2023-166464

PATIENT
  Age: 72 Year
  Sex: Male

DRUGS (4)
  1. NIVOLUMAB [Suspect]
     Active Substance: NIVOLUMAB
     Indication: Adenocarcinoma
     Dates: start: 202112
  2. OXALIPLATIN [Suspect]
     Active Substance: OXALIPLATIN
     Indication: Adenocarcinoma
     Dates: start: 202112
  3. CAPECITABINE [Concomitant]
     Active Substance: CAPECITABINE
     Indication: Adenocarcinoma
     Dates: start: 202112
  4. CAPECITABINE [Concomitant]
     Active Substance: CAPECITABINE
     Dates: start: 202305, end: 202309

REACTIONS (3)
  - Gouty arthritis [Unknown]
  - Immune-mediated arthritis [Unknown]
  - Polyneuropathy [Unknown]
